FAERS Safety Report 4986999-3 (Version None)
Quarter: 2006Q2

REPORT INFORMATION
  Report Type: 
  Country: None (occurrence: None)
  Receive Date: 20060501
  Receipt Date: 20060220
  Transmission Date: 20061013
  Serious: Yes (Hospitalization)
  Sender: FDA-Public Use
  Company Number: DE-BOEHRINGER INGELHEIM PHARMACEUTICALS, INC.-2006-DE-01030BY

PATIENT
  Sex: Female

DRUGS (9)
  1. KINZALMONO [Suspect]
     Indication: HYPERTENSION
     Route: 048
     Dates: start: 20051003
  2. MARCUMAR [Concomitant]
     Route: 048
     Dates: start: 20050407
  3. DIGIMERCK [Concomitant]
     Route: 065
     Dates: start: 20050407
  4. ARELIX [Concomitant]
     Route: 048
     Dates: start: 20050407
  5. ALLOPURINOL [Concomitant]
     Route: 048
     Dates: start: 20050407
  6. ISOKET [Concomitant]
     Route: 048
     Dates: start: 20050407
  7. BELAPRIL [Concomitant]
     Route: 048
     Dates: end: 20051003
  8. CARMEN [Concomitant]
     Route: 065
     Dates: start: 20050407
  9. BIOMO-LIPON [Concomitant]
     Route: 065
     Dates: start: 20050407

REACTIONS (6)
  - DIABETES MELLITUS [None]
  - DRY SKIN [None]
  - OEDEMA PERIPHERAL [None]
  - PRURITUS [None]
  - SKIN FISSURES [None]
  - VENOUS THROMBOSIS LIMB [None]
